FAERS Safety Report 14487404 (Version 2)
Quarter: 2018Q1

REPORT INFORMATION
  Report Type: Spontaneous
  Country: BR (occurrence: BR)
  Receive Date: 20180205
  Receipt Date: 20180216
  Transmission Date: 20180509
  Serious: Yes (Hospitalization, Disabling)
  Sender: FDA-Public Use
  Company Number: BR-SA-2018SA020595

PATIENT
  Age: 32 Year
  Sex: Female
  Weight: 58 kg

DRUGS (7)
  1. TAXOTERE [Suspect]
     Active Substance: DOCETAXEL
     Indication: BREAST CANCER
     Dosage: DOSE REDUCED
     Route: 042
     Dates: start: 20180103, end: 20180103
  2. TAXOTERE [Suspect]
     Active Substance: DOCETAXEL
     Indication: BREAST CANCER
     Route: 042
     Dates: start: 20170523, end: 20170523
  3. TAXOTERE [Suspect]
     Active Substance: DOCETAXEL
     Indication: BREAST CANCER
     Route: 042
     Dates: start: 20170320, end: 20170320
  4. TAXOTERE [Suspect]
     Active Substance: DOCETAXEL
     Indication: BREAST CANCER
     Dosage: DOSE REDUCED
     Route: 042
     Dates: start: 20170620, end: 20170620
  5. TAXOTERE [Suspect]
     Active Substance: DOCETAXEL
     Indication: BREAST CANCER
     Route: 042
     Dates: start: 20170320, end: 20170320
  6. TAXOTERE [Suspect]
     Active Substance: DOCETAXEL
     Indication: BREAST CANCER
     Dosage: DOSE REDUCED
     Route: 042
     Dates: start: 20171212, end: 20171212
  7. TRASTUZUMAB. [Concomitant]
     Active Substance: TRASTUZUMAB
     Indication: BREAST CANCER
     Route: 042
     Dates: start: 20170320, end: 20170320

REACTIONS (13)
  - Skin reaction [Recovered/Resolved]
  - Lacrimation increased [Recovered/Resolved]
  - Eye swelling [Recovered/Resolved]
  - Mucosal inflammation [Recovered/Resolved]
  - Ulcer [Recovered/Resolved]
  - Onychomadesis [Recovered/Resolved]
  - Skin lesion [Recovered/Resolved]
  - Toxic epidermal necrolysis [Recovered/Resolved]
  - Swelling [Recovered/Resolved]
  - Ocular hyperaemia [Recovered/Resolved]
  - Skin exfoliation [Recovered/Resolved]
  - Nonspecific reaction [Recovered/Resolved]
  - Skin hyperpigmentation [Recovered/Resolved]
